FAERS Safety Report 4846922-9 (Version None)
Quarter: 2005Q4

REPORT INFORMATION
  Report Type: 
  Country: None (occurrence: None)
  Receive Date: 20051207
  Receipt Date: 20051124
  Transmission Date: 20060501
  Serious: Yes (Hospitalization)
  Sender: FDA-Public Use
  Company Number: FR-AVENTIS-200513943FR

PATIENT
  Sex: Male

DRUGS (1)
  1. BIRODOGYL [Suspect]

REACTIONS (1)
  - APLASIA [None]
